FAERS Safety Report 21915063 (Version 2)
Quarter: 2024Q1

REPORT INFORMATION
  Report Type: Spontaneous
  Country: US (occurrence: US)
  Receive Date: 20230126
  Receipt Date: 20240110
  Transmission Date: 20240410
  Serious: No
  Sender: FDA-Public Use
  Company Number: US-CATALYST PHARMACEUTICALS, INC-US-CATA-22-02650

PATIENT
  Sex: Female

DRUGS (2)
  1. FIRDAPSE [Suspect]
     Active Substance: AMIFAMPRIDINE PHOSPHATE
     Indication: Myasthenic syndrome
     Dosage: 40 MILLIGRAM, QD, TITRATING DOWN TO 10MG
     Route: 048
     Dates: start: 20210129
  2. FIRDAPSE [Suspect]
     Active Substance: AMIFAMPRIDINE PHOSPHATE
     Indication: Lung neoplasm malignant
     Dosage: 10 MILLIGRAM, QD
     Route: 048
     Dates: end: 202211

REACTIONS (1)
  - Drug ineffective [Unknown]
